FAERS Safety Report 5071057-2 (Version None)
Quarter: 2006Q3

REPORT INFORMATION
  Report Type: 
  Country: None (occurrence: None)
  Receive Date: 20060804
  Receipt Date: 20060117
  Transmission Date: 20061208
  Serious: No
  Sender: FDA-Public Use
  Company Number: US-GLAXOSMITHKLINE-A0589553A

PATIENT
  Age: 47 Year
  Sex: Male

DRUGS (1)
  1. EQUATE NICOTINE GUM 4 MG, MINT [Suspect]

REACTIONS (2)
  - THROAT IRRITATION [None]
  - TOOTHACHE [None]
